FAERS Safety Report 4841571-0 (Version None)
Quarter: 2005Q4

REPORT INFORMATION
  Report Type: 
  Country: None (occurrence: None)
  Receive Date: 20051130
  Receipt Date: 20050823
  Transmission Date: 20060501
  Serious: Yes (Hospitalization, Other)
  Sender: FDA-Public Use
  Company Number: US-GLAXOSMITHKLINE-A0571661A

PATIENT
  Sex: Male

DRUGS (4)
  1. WELLBUTRIN [Suspect]
     Indication: DRUG USE FOR UNKNOWN INDICATION
     Route: 048
     Dates: start: 20041105
  2. LOTREL [Concomitant]
  3. VALPROATE SODIUM [Concomitant]
  4. RISPERDAL [Concomitant]

REACTIONS (1)
  - THROMBOCYTOPENIA [None]
